FAERS Safety Report 14459678 (Version 3)
Quarter: 2018Q1

REPORT INFORMATION
  Report Type: Spontaneous
  Country: DE (occurrence: DE)
  Receive Date: 20180130
  Receipt Date: 20180330
  Transmission Date: 20180509
  Serious: Yes (Hospitalization, Other)
  Sender: FDA-Public Use
  Company Number: DE-GLAXOSMITHKLINE-DE2018015254

PATIENT
  Age: 80 Year

DRUGS (4)
  1. VOLTAREN [Suspect]
     Active Substance: DICLOFENAC SODIUM
     Indication: HIP ARTHROPLASTY
     Dosage: UNK
     Route: 065
     Dates: start: 20080303
  2. ARCOXIA [Suspect]
     Active Substance: ETORICOXIB
     Indication: PRODUCT USED FOR UNKNOWN INDICATION
     Dosage: UNK
     Route: 065
  3. XARELTO [Suspect]
     Active Substance: RIVAROXABAN
     Dosage: 20 MG, UNK
     Route: 065
  4. XARELTO [Suspect]
     Active Substance: RIVAROXABAN
     Indication: PULMONARY EMBOLISM
     Dosage: 15 MG, UNK
     Route: 065

REACTIONS (17)
  - Retinal infarction [Unknown]
  - Glomus tumour [Recovered/Resolved]
  - Fall [Unknown]
  - Breast cancer [Unknown]
  - White blood cell count decreased [Unknown]
  - Pruritus [Unknown]
  - Peripheral swelling [Recovered/Resolved]
  - Pulmonary embolism [Unknown]
  - Embolism [Unknown]
  - Vomiting [Unknown]
  - Loss of consciousness [Unknown]
  - Pneumonia [Unknown]
  - Limb discomfort [Unknown]
  - Arthralgia [Unknown]
  - Blindness unilateral [Unknown]
  - Sleep disorder [Unknown]
  - Trigger finger [Recovered/Resolved]

NARRATIVE: CASE EVENT DATE: 2008
